FAERS Safety Report 11098848 (Version 3)
Quarter: 2016Q2

REPORT INFORMATION
  Report Type: Spontaneous
  Country: US (occurrence: US)
  Receive Date: 20150508
  Receipt Date: 20160504
  Transmission Date: 20160815
  Serious: Yes (Death, Other)
  Sender: FDA-Public Use
  Company Number: US-ALKEM-000990

PATIENT
  Age: 47 Year
  Sex: Female
  Weight: 118 kg

DRUGS (2)
  1. GABAPENTIN. [Suspect]
     Active Substance: GABAPENTIN
     Indication: PRODUCT USED FOR UNKNOWN INDICATION
     Dosage: 26 TABLETS
  2. DIHYDROCODEINE/PARACETAMOL [Concomitant]

REACTIONS (4)
  - Pneumonia [Fatal]
  - Toxicity to various agents [Fatal]
  - Self-medication [Unknown]
  - Respiratory depression [Fatal]
